FAERS Safety Report 7465152-8 (Version None)
Quarter: 2011Q2

REPORT INFORMATION
  Report Type: 
  Country: None (occurrence: None)
  Receive Date: 20110428
  Receipt Date: 20110413
  Transmission Date: 20111010
  Serious: Yes (Death)
  Sender: FDA-Public Use
  Company Number: AUR-APL-2009-01501

PATIENT
  Age: 71 Year
  Sex: Female

DRUGS (1)
  1. AMOXICILLIN [Suspect]
     Indication: UPPER RESPIRATORY TRACT INFECTION

REACTIONS (4)
  - HYPOTHERMIA [None]
  - STREPTOCOCCAL INFECTION [None]
  - STEVENS-JOHNSON SYNDROME [None]
  - TOXIC EPIDERMAL NECROLYSIS [None]
